FAERS Safety Report 23568543 (Version 1)
Quarter: 2024Q1

REPORT INFORMATION
  Report Type: Spontaneous
  Country: KR (occurrence: KR)
  Receive Date: 20240227
  Receipt Date: 20240227
  Transmission Date: 20240409
  Serious: Yes (Other)
  Sender: FDA-Public Use
  Company Number: KR-BRISTOL-MYERS SQUIBB COMPANY-2024-029074

PATIENT
  Age: 39 Year
  Sex: Male

DRUGS (1)
  1. SPRYCEL [Suspect]
     Active Substance: DASATINIB
     Indication: Chronic myeloid leukaemia
     Dates: start: 20220406

REACTIONS (1)
  - Leukopenia [Recovered/Resolved]

NARRATIVE: CASE EVENT DATE: 20220518
